FAERS Safety Report 9338911 (Version 1)
Quarter: 2013Q2

REPORT INFORMATION
  Report Type: Spontaneous
  Country: US (occurrence: US)
  Receive Date: 20130610
  Receipt Date: 20130610
  Transmission Date: 20140414
  Serious: Yes (Other)
  Sender: FDA-Public Use
  Company Number: US-PFIZER INC-2013174253

PATIENT
  Age: 44 Year
  Sex: Female
  Weight: 54 kg

DRUGS (14)
  1. LYRICA [Suspect]
     Indication: FIBROMYALGIA
     Dosage: 150 MG, 1X/DAY
     Route: 048
  2. CYMBALTA [Concomitant]
     Dosage: 60 MG, 1X/DAY
  3. TRAZODONE [Concomitant]
     Dosage: 25 MG, 1X/DAY
  4. PROPRANOLOL [Concomitant]
     Dosage: 10 MG, AS NEEDED
  5. HYDROCODONE W/ACETAMINOPHEN [Concomitant]
     Dosage: 10/325 MG, AS NEEDED
  6. BUTALBITAL [Concomitant]
     Dosage: UNK, AS NEEDED
  7. VOLTAREN [Concomitant]
     Dosage: UNK
  8. CLONAZEPAM [Concomitant]
     Dosage: 1 MG, 2X/DAY
  9. MACROBID [Concomitant]
     Dosage: 100 MG, AS NEEDED
  10. RITALIN [Concomitant]
     Dosage: 10 MG, 2X/DAY
  11. WELLBUTRIN [Concomitant]
     Dosage: 100 MG, 2X/DAY
  12. MIDODRINE [Concomitant]
     Dosage: 10 MG, 3X/DAY
  13. TAMOXIFEN [Concomitant]
     Dosage: 20 MG, 1X/DAY
  14. RELPAX [Concomitant]
     Dosage: 40 MG, AS NEEDED

REACTIONS (1)
  - Breast cancer female [Unknown]
